FAERS Safety Report 9220250 (Version 1)
Quarter: 2013Q1

REPORT INFORMATION
  Report Type: Spontaneous
  Country: US (occurrence: None)
  Receive Date: 20120830
  Receipt Date: 20120830
  Transmission Date: 20140127
  Serious: Yes (Other)
  Sender: FDA-Public Use
  Company Number: US008755

PATIENT
  Age: 45 Year
  Sex: Female

DRUGS (2)
  1. GABITRIL ( TIAGABINE) [Suspect]
     Indication: CONVULSION
     Dosage: 24 MG ( 24 MG, 1 IN 1 D), ORAL
     Route: 048
     Dates: start: 199712, end: 19980220
  2. TEGRETOL [Concomitant]

REACTIONS (1)
  - Status epilepticus [None]
